FAERS Safety Report 19855371 (Version 1)
Quarter: 2021Q3

REPORT INFORMATION
  Report Type: Spontaneous
  Country: US (occurrence: US)
  Receive Date: 20210918
  Receipt Date: 20210918
  Transmission Date: 20211014
  Serious: Yes (Life-Threatening, Hospitalization, Disabling, Other)
  Sender: FDA-Public Use
  Company Number: None

PATIENT
  Age: 20 Year
  Sex: Male
  Weight: 84.37 kg

DRUGS (1)
  1. DELTA?8 CANNABIS [Suspect]
     Active Substance: .DELTA.8-TETRAHYDROCANNABINOL\HERBALS

REACTIONS (4)
  - Hallucination, auditory [None]
  - Suicidal ideation [None]
  - Substance-induced psychotic disorder [None]
  - Paranoia [None]

NARRATIVE: CASE EVENT DATE: 20210917
